FAERS Safety Report 8543429-2 (Version None)
Quarter: 2012Q3

REPORT INFORMATION
  Report Type: 
  Country: None (occurrence: None)
  Receive Date: 20120727
  Receipt Date: 20120725
  Transmission Date: 20120928
  Serious: Yes (Other)
  Sender: FDA-Public Use
  Company Number: JP-PFIZER INC-2012180279

PATIENT
  Age: 45 Year
  Sex: Male

DRUGS (1)
  1. VARENICLINE TARTRATE [Suspect]
     Dosage: UNK
     Dates: start: 20120402

REACTIONS (6)
  - CREATININE RENAL CLEARANCE INCREASED [None]
  - BLOOD ALBUMIN DECREASED [None]
  - DISEASE RECURRENCE [None]
  - NEPHROTIC SYNDROME [None]
  - BACK PAIN [None]
  - PROTEIN URINE PRESENT [None]
